FAERS Safety Report 8516484-3 (Version None)
Quarter: 2012Q3

REPORT INFORMATION
  Report Type: 
  Country: None (occurrence: None)
  Receive Date: 20120718
  Receipt Date: 20120716
  Transmission Date: 20120928
  Serious: Yes (Other)
  Sender: FDA-Public Use
  Company Number: US-PFIZER INC-2012170887

PATIENT
  Sex: Male
  Weight: 68.481 kg

DRUGS (3)
  1. CREON [Concomitant]
     Indication: PANCREATIC DISORDER
     Dosage: 24000CC, 6 TABLETS DAILY
  2. CHANTIX [Suspect]
     Dosage: 1 MG, 2X/DAY
     Dates: start: 20120601, end: 20120701
  3. CHANTIX [Suspect]
     Indication: SMOKING CESSATION THERAPY
     Dosage: 0.5 MG, DAILY
     Dates: start: 20120611, end: 20120601

REACTIONS (4)
  - MUSCULOSKELETAL STIFFNESS [None]
  - CHEST PAIN [None]
  - DYSPNOEA [None]
  - PAIN IN EXTREMITY [None]
